FAERS Safety Report 20554269 (Version 1)
Quarter: 2022Q1

REPORT INFORMATION
  Report Type: Spontaneous
  Country: US (occurrence: US)
  Receive Date: 20220304
  Receipt Date: 20220304
  Transmission Date: 20220423
  Serious: No
  Sender: FDA-Public Use
  Company Number: US-PFIZER INC-2021832157

PATIENT
  Age: 79 Year
  Sex: Female

DRUGS (1)
  1. XELJANZ XR [Suspect]
     Active Substance: TOFACITINIB CITRATE
     Dosage: 11 MG
     Dates: start: 2021, end: 20210730

REACTIONS (5)
  - Hypoacusis [Unknown]
  - Dysphagia [Recovered/Resolved]
  - Lymphadenopathy [Unknown]
  - Swollen tongue [Unknown]
  - Stomatitis [Recovering/Resolving]
